FAERS Safety Report 8160352-6 (Version None)
Quarter: 2012Q1

REPORT INFORMATION
  Report Type: 
  Country: None (occurrence: None)
  Receive Date: 20120223
  Receipt Date: 20120221
  Transmission Date: 20120608
  Serious: No
  Sender: FDA-Public Use
  Company Number: US-TEVA-323829USA

PATIENT
  Sex: Male

DRUGS (3)
  1. PROAIR HFA [Suspect]
     Indication: DYSPNOEA
     Dosage: 45 MICROGRAM;
     Route: 055
  2. CLOZAPINE [Concomitant]
     Dosage: 450 MILLIGRAM;
     Route: 048
  3. PRAVASTATIN [Concomitant]
     Indication: HYPERCHOLESTEROLAEMIA
     Route: 048

REACTIONS (1)
  - PRODUCT TASTE ABNORMAL [None]
